FAERS Safety Report 11745891 (Version 1)
Quarter: 2015Q4

REPORT INFORMATION
  Report Type: Report from Study
  Country: US (occurrence: US)
  Receive Date: 20151117
  Receipt Date: 20151117
  Transmission Date: 20160304
  Serious: Yes (Other)
  Sender: FDA-Public Use
  Company Number: PHEH2015US022916

PATIENT
  Sex: Female

DRUGS (1)
  1. AFINITOR [Suspect]
     Active Substance: EVEROLIMUS
     Indication: BREAST CANCER STAGE IV
     Route: 065

REACTIONS (5)
  - Brain neoplasm [Unknown]
  - Neoplasm [Unknown]
  - Gastric neoplasm [Unknown]
  - Malaise [Unknown]
  - Dysphagia [Unknown]
